FAERS Safety Report 17926679 (Version 1)
Quarter: 2020Q2

REPORT INFORMATION
  Report Type: Spontaneous
  Country: MY (occurrence: MY)
  Receive Date: 20200623
  Receipt Date: 20200623
  Transmission Date: 20200714
  Serious: No
  Sender: FDA-Public Use
  Company Number: MY-LEADINGPHARMA-MY-2020LEALIT00096

PATIENT
  Age: 73 Year
  Sex: Female

DRUGS (1)
  1. HYDROXYUREA CAPSULES USP [Suspect]
     Active Substance: HYDROXYUREA
     Indication: ESSENTIAL THROMBOCYTHAEMIA
     Route: 065

REACTIONS (2)
  - Ileal ulcer [Recovered/Resolved]
  - Nail pigmentation [Unknown]
